FAERS Safety Report 5868771-5 (Version None)
Quarter: 2008Q3

REPORT INFORMATION
  Report Type: 
  Country: None (occurrence: None)
  Receive Date: 20080902
  Receipt Date: 20080902
  Transmission Date: 20090109
  Serious: No
  Sender: FDA-Public Use
  Company Number: None

PATIENT
  Age: 41 Year
  Sex: Male
  Weight: 74.8435 kg

DRUGS (1)
  1. LEVAQUIN [Suspect]
     Indication: SINUSITIS
     Dosage: 500 MG 1 / DAY
     Dates: start: 20080811

REACTIONS (4)
  - BLOOD PRESSURE INCREASED [None]
  - CAFFEINE CONSUMPTION [None]
  - EUPHORIC MOOD [None]
  - HEART RATE INCREASED [None]
